FAERS Safety Report 8471377-5 (Version None)
Quarter: 2012Q2

REPORT INFORMATION
  Report Type: 
  Country: None (occurrence: None)
  Receive Date: 20120627
  Receipt Date: 20120626
  Transmission Date: 20120825
  Serious: Yes (Hospitalization)
  Sender: FDA-Public Use
  Company Number: FR-ROCHE-1079215

PATIENT
  Sex: Male
  Weight: 74 kg

DRUGS (3)
  1. PEGASYS [Suspect]
     Indication: HEPATITIS C
     Route: 058
     Dates: start: 20120220
  2. PEGASYS [Suspect]
  3. COPEGUS [Suspect]
     Indication: HEPATITIS C
     Dates: start: 20120220

REACTIONS (4)
  - FATIGUE [None]
  - MALAISE [None]
  - ARRHYTHMIA [None]
  - ARTHRALGIA [None]
